FAERS Safety Report 25051458 (Version 1)
Quarter: 2025Q1

REPORT INFORMATION
  Report Type: Spontaneous
  Country: US (occurrence: US)
  Receive Date: 20250307
  Receipt Date: 20250307
  Transmission Date: 20250408
  Serious: Yes (Other)
  Sender: SK LIFE SCIENCE
  Company Number: US-SK LIFE SCIENCE, INC-SKPVG-2025-000279

PATIENT

DRUGS (6)
  1. XCOPRI [Suspect]
     Active Substance: CENOBAMATE
     Indication: Simple partial seizures
     Route: 048
     Dates: start: 202405
  2. XCOPRI [Suspect]
     Active Substance: CENOBAMATE
     Dosage: 250 MILLIGRAM, QD (50MG IN THE AM, 200MG AT NIGHT)
     Route: 048
     Dates: end: 20250210
  3. XCOPRI [Suspect]
     Active Substance: CENOBAMATE
     Dosage: 50 MG IN THE MORNING, 200 MG IN THE  AFTERNOON AS WELL AS 200 MG AT NIGHT
     Route: 065
  4. BRIVIACT [Concomitant]
     Active Substance: BRIVARACETAM
     Indication: Product used for unknown indication
     Route: 065
  5. AMBIEN [Concomitant]
     Active Substance: ZOLPIDEM TARTRATE
     Indication: Insomnia
     Route: 065
  6. LORAZEPAM [Concomitant]
     Active Substance: LORAZEPAM
     Indication: Seizure
     Route: 065

REACTIONS (5)
  - Brain neoplasm [Unknown]
  - Seizure [Not Recovered/Not Resolved]
  - Loss of consciousness [Unknown]
  - Overdose [Unknown]
  - Loss of employment [Unknown]
